FAERS Safety Report 6145636-5 (Version None)
Quarter: 2009Q2

REPORT INFORMATION
  Report Type: 
  Country: None (occurrence: None)
  Receive Date: 20090407
  Receipt Date: 20090403
  Transmission Date: 20091009
  Serious: Yes (Hospitalization)
  Sender: FDA-Public Use
  Company Number: NSADSS2001019427

PATIENT
  Age: 50 Year
  Sex: Female

DRUGS (2)
  1. SPORANOX [Suspect]
     Indication: NAIL DISORDER
     Route: 048
  2. SPORANOX [Suspect]
     Route: 048

REACTIONS (1)
  - PANCREATITIS ACUTE [None]
